FAERS Safety Report 4811592-2 (Version None)
Quarter: 2005Q4

REPORT INFORMATION
  Report Type: 
  Country: None (occurrence: None)
  Receive Date: 20051025
  Receipt Date: 20051005
  Transmission Date: 20060501
  Serious: Yes (Other)
  Sender: FDA-Public Use
  Company Number: 2005BH002296

PATIENT
  Age: 39 Year
  Sex: Female
  Weight: 72 kg

DRUGS (6)
  1. PHENOBARBITOL (PHENOBARBITOL) [Suspect]
     Indication: EPILEPSY
  2. ETHOSUXIMIDE [Suspect]
     Indication: EPILEPSY
  3. VALPROIC ACID [Suspect]
     Indication: EPILEPSY
  4. CARBAMAZEPINE [Suspect]
     Indication: EPILEPSY
  5. OXCARBAZEPINE [Concomitant]
  6. LAMOTRIGINE [Concomitant]

REACTIONS (5)
  - FALL [None]
  - OSTEOPENIA [None]
  - OSTEOPOROSIS [None]
  - PELVIC FRACTURE [None]
  - SPINAL FRACTURE [None]
